FAERS Safety Report 21045085 (Version 2)
Quarter: 2023Q2

REPORT INFORMATION
  Report Type: Spontaneous
  Country: DE (occurrence: DE)
  Receive Date: 20220705
  Receipt Date: 20230403
  Transmission Date: 20230722
  Serious: Yes (Other)
  Sender: FDA-Public Use
  Company Number: None

PATIENT

DRUGS (6)
  1. MENOTROPINS [Suspect]
     Active Substance: MENOTROPINS
     Indication: Assisted reproductive technology
     Dosage: 75, 1 AMPOULE/DAY
     Route: 065
     Dates: start: 20220414, end: 20220425
  2. GONADOTROPHIN, CHORIONIC [Suspect]
     Active Substance: GONADOTROPHIN, CHORIONIC
     Indication: Assisted reproductive technology
     Dosage: 5000 INTERNATIONAL UNIT
     Route: 065
     Dates: start: 20220503
  3. GONADOTROPHIN, CHORIONIC [Suspect]
     Active Substance: GONADOTROPHIN, CHORIONIC
     Dosage: 5000 INTERNATIONAL UNIT
     Route: 065
     Dates: start: 20220425
  4. DECAPEPTYL (ACETATE) [Suspect]
     Active Substance: TRIPTORELIN ACETATE
     Indication: Assisted reproductive technology
     Dosage: 0.1
     Route: 065
     Dates: start: 20220414, end: 20220425
  5. FOLLITROPIN BETA [Suspect]
     Active Substance: FOLLITROPIN BETA
     Indication: Assisted reproductive technology
     Dosage: 100
     Route: 065
     Dates: start: 20220414, end: 20220425
  6. PROGESTERONE [Suspect]
     Active Substance: PROGESTERONE
     Indication: Assisted reproductive technology
     Dosage: 200 MG, 600 MG, 1 TIME DAILY
     Route: 067
     Dates: start: 20220427

REACTIONS (3)
  - Ovarian hyperstimulation syndrome [Recovered/Resolved]
  - Generalised oedema [Recovered/Resolved]
  - Off label use [Recovered/Resolved]

NARRATIVE: CASE EVENT DATE: 20220507
